FAERS Safety Report 23342952 (Version 1)
Quarter: 2023Q4

REPORT INFORMATION
  Report Type: Spontaneous
  Country: US (occurrence: US)
  Receive Date: 20231227
  Receipt Date: 20231227
  Transmission Date: 20240110
  Serious: Yes (Hospitalization, Other)
  Sender: FDA-Public Use
  Company Number: US-AMGEN-USASP2023226832

PATIENT

DRUGS (1)
  1. BEVACIZUMAB [Suspect]
     Active Substance: BEVACIZUMAB
     Indication: Ovarian cancer
     Dosage: UNK
     Route: 065

REACTIONS (10)
  - Post procedural complication [Unknown]
  - Small intestinal obstruction [Unknown]
  - Procedural intestinal perforation [Unknown]
  - Anastomotic leak [Unknown]
  - Post procedural infection [Unknown]
  - Postoperative ileus [Unknown]
  - Lung disorder [Unknown]
  - Urinary tract procedural complication [Unknown]
  - Postoperative wound complication [Unknown]
  - Post procedural fever [Unknown]
